FAERS Safety Report 13945330 (Version 3)
Quarter: 2017Q4

REPORT INFORMATION
  Report Type: Spontaneous
  Country: US (occurrence: US)
  Receive Date: 20170907
  Receipt Date: 20171218
  Transmission Date: 20180320
  Serious: Yes (Hospitalization)
  Sender: FDA-Public Use
  Company Number: US-PFIZER INC-2017382701

PATIENT
  Age: 57 Year
  Sex: Male
  Weight: 95.25 kg

DRUGS (2)
  1. VIAGRA [Suspect]
     Active Substance: SILDENAFIL CITRATE
     Indication: SEXUAL DYSFUNCTION
     Dosage: 100 MG, EVERY DAY
     Route: 048
     Dates: start: 2017
  2. VIAGRA [Suspect]
     Active Substance: SILDENAFIL CITRATE
     Indication: ERECTILE DYSFUNCTION

REACTIONS (3)
  - Rash [Recovered/Resolved]
  - Pruritus [Unknown]
  - Drug hypersensitivity [Unknown]
